FAERS Safety Report 21652938 (Version 1)
Quarter: 2022Q4

REPORT INFORMATION
  Report Type: Report from Study
  Country: DE (occurrence: DE)
  Receive Date: 20221128
  Receipt Date: 20221128
  Transmission Date: 20230112
  Serious: Yes (Hospitalization)
  Sender: FDA-Public Use
  Company Number: DE-009507513-2211DEU004515

PATIENT
  Age: 46 Year
  Sex: Female
  Weight: 89 kg

DRUGS (6)
  1. PEMETREXED [Suspect]
     Active Substance: PEMETREXED
     Indication: Non-small cell lung cancer
     Dosage: 1040 MILLIGRAM
     Dates: start: 20221013, end: 20221013
  2. PEMETREXED [Suspect]
     Active Substance: PEMETREXED
     Dosage: FIRST LINE 1040 MILLIGRAM
     Dates: start: 20220917, end: 20220917
  3. PEMBROLIZUMAB [Suspect]
     Active Substance: PEMBROLIZUMAB
     Indication: Non-small cell lung cancer
     Dosage: 200 MILLIGRAM
     Dates: start: 20221014, end: 20221014
  4. PEMBROLIZUMAB [Suspect]
     Active Substance: PEMBROLIZUMAB
     Dosage: FIRST LINE 200 MILLIGRAM
     Dates: start: 20220917, end: 20220917
  5. CARBOPLATIN [Suspect]
     Active Substance: CARBOPLATIN
     Indication: Non-small cell lung cancer
     Dosage: FIRST LINE 420 MILLIGRAM
     Dates: start: 20220917, end: 20220917
  6. CARBOPLATIN [Suspect]
     Active Substance: CARBOPLATIN
     Dosage: 420 MILLIGRAM
     Dates: start: 20221013, end: 20221013

REACTIONS (1)
  - Hyperthyroidism [Not Recovered/Not Resolved]

NARRATIVE: CASE EVENT DATE: 20221108
